FAERS Safety Report 16823530 (Version 3)
Quarter: 2019Q4

REPORT INFORMATION
  Report Type: Spontaneous
  Country: AU (occurrence: AU)
  Receive Date: 20190918
  Receipt Date: 20191016
  Transmission Date: 20200122
  Serious: Yes (Death, Disabling, Other)
  Sender: FDA-Public Use
  Company Number: AU-ASTRAZENECA-2019SF31014

PATIENT
  Age: 31902 Day
  Sex: Male

DRUGS (3)
  1. BYDUREON [Suspect]
     Active Substance: EXENATIDE
     Indication: DIABETES MELLITUS
     Route: 058
     Dates: start: 20181122, end: 20190120
  2. WARFARIN [Concomitant]
     Active Substance: WARFARIN
     Indication: ATRIAL FIBRILLATION
     Dosage: 2.0MG UNKNOWN
     Route: 048
     Dates: end: 20180803
  3. XARELTO [Concomitant]
     Active Substance: RIVAROXABAN
     Indication: ATRIAL FIBRILLATION
     Dosage: 20.0MG UNKNOWN
     Route: 048
     Dates: start: 20180803

REACTIONS (8)
  - General physical health deterioration [Unknown]
  - Death [Fatal]
  - Vomiting [Unknown]
  - Decreased appetite [Unknown]
  - Hyponatraemia [Unknown]
  - Confusional state [Unknown]
  - Nausea [Recovered/Resolved]
  - Weight decreased [Unknown]

NARRATIVE: CASE EVENT DATE: 20181123
